FAERS Safety Report 9109884 (Version 1)
Quarter: 2013Q1

REPORT INFORMATION
  Report Type: Spontaneous
  Country: JP (occurrence: JP)
  Receive Date: 20130222
  Receipt Date: 20130222
  Transmission Date: 20140127
  Serious: Yes (Other)
  Sender: FDA-Public Use
  Company Number: JP-ASTRAZENECA-2013SE07594

PATIENT
  Age: 28 Year
  Sex: Female

DRUGS (2)
  1. XYLOCAINE [Suspect]
     Indication: EPIDURAL ANAESTHESIA
     Route: 008
  2. NEO-PERCAMIN_S [Concomitant]
     Indication: SPINAL ANAESTHESIA
     Route: 029

REACTIONS (1)
  - Subdural haematoma [Recovered/Resolved]
